FAERS Safety Report 20697254 (Version 1)
Quarter: 2022Q2

REPORT INFORMATION
  Report Type: Spontaneous
  Country: US (occurrence: US)
  Receive Date: 20220411
  Receipt Date: 20220411
  Transmission Date: 20220720
  Serious: Yes (Other)
  Sender: FDA-Public Use
  Company Number: US-AMERICAN REGENT INC-2022000978

PATIENT
  Age: 29 Year
  Sex: Female

DRUGS (10)
  1. VASOPRESSIN [Suspect]
     Active Substance: VASOPRESSIN
     Indication: Cardiogenic shock
     Dosage: UNK; INCREASING DOSES
     Route: 065
  2. VASOPRESSIN [Suspect]
     Active Substance: VASOPRESSIN
     Indication: Hypotension
  3. DOPAMINE HYDROCHLORIDE [Suspect]
     Active Substance: DOPAMINE HYDROCHLORIDE
     Indication: Cardiogenic shock
     Dosage: UNK; INCREASING DOSES
     Route: 065
  4. DOPAMINE HYDROCHLORIDE [Suspect]
     Active Substance: DOPAMINE HYDROCHLORIDE
     Indication: Hypotension
  5. EPINEPHRINE [Suspect]
     Active Substance: EPINEPHRINE
     Indication: Cardiogenic shock
     Dosage: UNK; INCREASING DOSES
     Route: 065
  6. EPINEPHRINE [Suspect]
     Active Substance: EPINEPHRINE
     Indication: Hypotension
  7. PHENYLEPHRINE [Suspect]
     Active Substance: PHENYLEPHRINE HYDROCHLORIDE
     Indication: Cardiogenic shock
     Dosage: UNK; INCREASING DOSES
     Route: 065
  8. PHENYLEPHRINE [Suspect]
     Active Substance: PHENYLEPHRINE HYDROCHLORIDE
     Indication: Hypotension
  9. NOREPINEPHRINE [Suspect]
     Active Substance: NOREPINEPHRINE
     Indication: Cardiogenic shock
     Dosage: UNK; INCREASING DOSES
     Route: 065
  10. NOREPINEPHRINE [Suspect]
     Active Substance: NOREPINEPHRINE
     Indication: Hypotension

REACTIONS (3)
  - Drug ineffective [Recovered/Resolved]
  - Hypotension [Recovered/Resolved]
  - Product use in unapproved indication [None]
